FAERS Safety Report 6451181-X (Version None)
Quarter: 2009Q4

REPORT INFORMATION
  Report Type: 
  Country: None (occurrence: None)
  Receive Date: 20091123
  Receipt Date: 20091112
  Transmission Date: 20100525
  Serious: Yes (Other)
  Sender: FDA-Public Use
  Company Number: SG-JNJFOC-20091009100

PATIENT
  Age: 61 Year
  Sex: Male

DRUGS (5)
  1. DORIPENEM [Suspect]
     Route: 041
  2. DORIPENEM [Suspect]
     Indication: LOCALISED INFECTION
     Route: 041
  3. SPIRONOLACTONE [Concomitant]
     Indication: FLUID OVERLOAD
     Route: 065
  4. LACTULOSE [Concomitant]
     Indication: CONSTIPATION
     Route: 065
  5. INSULIN [Concomitant]
     Indication: DIABETES MELLITUS
     Route: 065

REACTIONS (3)
  - EYELID PTOSIS [None]
  - OFF LABEL USE [None]
  - RASH PRURITIC [None]
